FAERS Safety Report 7314132-1 (Version None)
Quarter: 2011Q1

REPORT INFORMATION
  Report Type: 
  Country: None (occurrence: None)
  Receive Date: 20110225
  Receipt Date: 20100624
  Transmission Date: 20110831
  Serious: No
  Sender: FDA-Public Use
  Company Number: US-MYLANLABS-2010S1008547

PATIENT
  Age: 24 Year
  Sex: Male
  Weight: 84.7 kg

DRUGS (1)
  1. AMNESTEEM [Suspect]
     Indication: ACNE
     Dates: start: 20091029, end: 20100205

REACTIONS (1)
  - LIVER FUNCTION TEST ABNORMAL [None]
